FAERS Safety Report 8578610-X (Version None)
Quarter: 2012Q3

REPORT INFORMATION
  Report Type: 
  Country: None (occurrence: None)
  Receive Date: 20120726
  Receipt Date: 20120711
  Transmission Date: 20120928
  Serious: Yes (Hospitalization)
  Sender: FDA-Public Use
  Company Number: 120315

PATIENT
  Age: 55 Year
  Sex: Female
  Weight: 56.6996 kg

DRUGS (10)
  1. LISINOPRIL [Concomitant]
  2. BUPROPION HCL [Concomitant]
  3. EXCEDRIN (MIGRAINE) [Concomitant]
  4. PROBIOTICS [Concomitant]
  5. ALPRAZOLAM [Concomitant]
  6. IMITREX [Concomitant]
  7. OMEPRAZOLE [Concomitant]
  8. AMBIEN [Concomitant]
  9. CYMBALTA [Concomitant]
  10. HALFLYTELY WITH BISACODYL TABLET (TABLETS) [Suspect]
     Indication: BOWEL PREPARATION
     Dosage: ORAL
     Route: 048
     Dates: start: 20111211, end: 20111211

REACTIONS (10)
  - DIZZINESS [None]
  - URINARY TRACT INFECTION [None]
  - ABDOMINAL PAIN [None]
  - HAEMATOCHEZIA [None]
  - THROMBOSIS [None]
  - ABDOMINAL PAIN UPPER [None]
  - NEPHROLITHIASIS [None]
  - RECTAL HAEMORRHAGE [None]
  - DYSPNOEA [None]
  - CONSTIPATION [None]
